FAERS Safety Report 6070662-4 (Version None)
Quarter: 2009Q1

REPORT INFORMATION
  Report Type: 
  Country: None (occurrence: None)
  Receive Date: 20090209
  Receipt Date: 20090202
  Transmission Date: 20090719
  Serious: Yes (Other)
  Sender: FDA-Public Use
  Company Number: US-GENENTECH-275486

PATIENT
  Sex: Female
  Weight: 79.819 kg

DRUGS (20)
  1. BLINDED ERLOTINIB [Suspect]
     Indication: NON-SMALL CELL LUNG CANCER
     Dosage: 100 MG, QD
     Route: 048
     Dates: start: 20080111
  2. BLINDED PLACEBO [Suspect]
     Indication: NON-SMALL CELL LUNG CANCER
     Dosage: 100 MG, QD
     Route: 048
     Dates: start: 20080111
  3. BEVACIZUMAB [Suspect]
     Indication: NON-SMALL CELL LUNG CANCER
     Dosage: 864 MG, Q3W
     Route: 042
     Dates: start: 20071002
  4. CHEMOTHERAPY NOS [Suspect]
     Indication: NON-SMALL CELL LUNG CANCER
  5. GEMCITABINE [Concomitant]
     Indication: NON-SMALL CELL LUNG CANCER
     Dosage: 1000 MG/M2, UNK
     Route: 042
  6. CARBOPLATIN [Concomitant]
     Indication: NON-SMALL CELL LUNG CANCER
     Dosage: 5 AUC, UNK
     Route: 042
  7. PACLITAXEL [Concomitant]
     Indication: NON-SMALL CELL LUNG CANCER
     Dosage: 175 MG/M2, UNK
     Route: 042
  8. CIMETIDINE [Concomitant]
     Indication: DRUG USE FOR UNKNOWN INDICATION
     Dosage: 300 MG, UNK
     Route: 042
  9. DIPHENHYDRAMIN-HCL [Concomitant]
     Indication: DRUG USE FOR UNKNOWN INDICATION
     Dosage: 50 MG, UNK
     Route: 042
  10. DEXAMETHASONE TAB [Concomitant]
     Indication: DRUG USE FOR UNKNOWN INDICATION
     Dosage: 10 MG, UNK
     Route: 042
  11. PALONOSETRON [Concomitant]
     Indication: DRUG USE FOR UNKNOWN INDICATION
     Dosage: 0.25 MG, UNK
     Route: 042
  12. PRILOSEC [Concomitant]
     Indication: DRUG USE FOR UNKNOWN INDICATION
     Dosage: 20 MG, QD
     Route: 048
  13. LORAZEPAM [Concomitant]
     Indication: DRUG USE FOR UNKNOWN INDICATION
     Dosage: 2 MG, QD
     Route: 048
  14. POTASSIUM CHLORIDE [Concomitant]
     Indication: DRUG USE FOR UNKNOWN INDICATION
     Dosage: 20 MG, BID
     Route: 048
  15. LASIX [Concomitant]
     Indication: DRUG USE FOR UNKNOWN INDICATION
     Dosage: 60 MG, BID
  16. LYRICA [Concomitant]
     Indication: DRUG USE FOR UNKNOWN INDICATION
     Dosage: 25 MG, QD
     Route: 048
  17. ZYRTEC [Concomitant]
     Indication: DRUG USE FOR UNKNOWN INDICATION
     Dosage: UNK
     Route: 048
  18. AVINZA [Concomitant]
     Indication: DRUG USE FOR UNKNOWN INDICATION
     Dosage: 270 MG, QD
     Route: 048
  19. CYMBALTA [Concomitant]
     Indication: DRUG USE FOR UNKNOWN INDICATION
     Dosage: 60 MG, QD
     Route: 048
  20. FENTANYL-75 [Concomitant]
     Indication: DRUG USE FOR UNKNOWN INDICATION

REACTIONS (1)
  - COGNITIVE DISORDER [None]
